FAERS Safety Report 6358356-9 (Version None)
Quarter: 2009Q3

REPORT INFORMATION
  Report Type: 
  Country: None (occurrence: None)
  Receive Date: 20090916
  Receipt Date: 20090911
  Transmission Date: 20100115
  Serious: Yes (Hospitalization, Other)
  Sender: FDA-Public Use
  Company Number: TZ-B.I. PHARMACEUTICALS,INC./RIDGEFIELD-2009-BP-10460BP

PATIENT
  Sex: Male
  Weight: 2.23 kg

DRUGS (3)
  1. VIRAMUNE [Suspect]
     Indication: PROPHYLAXIS AGAINST HIV INFECTION
     Dosage: 1.5 ML
     Route: 048
     Dates: start: 20090731, end: 20090827
  2. NEVIRAPINE [Suspect]
     Indication: PROPHYLAXIS AGAINST HIV INFECTION
     Route: 048
     Dates: start: 20090828, end: 20090902
  3. COTRIM [Concomitant]
     Indication: PROPHYLAXIS

REACTIONS (2)
  - MALNUTRITION [None]
  - PNEUMONIA [None]
